FAERS Safety Report 23907095 (Version 2)
Quarter: 2024Q3

REPORT INFORMATION
  Report Type: Spontaneous
  Country: JP (occurrence: JP)
  Receive Date: 20240528
  Receipt Date: 20240805
  Transmission Date: 20241017
  Serious: Yes (Other)
  Sender: ROCHE
  Company Number: JP-CHUGAI-2024016740

PATIENT
  Age: 89 Year
  Sex: Male

DRUGS (3)
  1. VABYSMO [Suspect]
     Active Substance: FARICIMAB\FARICIMAB-SVOA
     Indication: Age-related macular degeneration
     Dosage: 0.05 MILLILITER, ONCE/4WEEKS (RIGHT EYE)?STRENGTH: 120 MG/ML
     Route: 050
     Dates: start: 20240122, end: 20240122
  2. VABYSMO [Suspect]
     Active Substance: FARICIMAB\FARICIMAB-SVOA
     Dosage: (RIGHT EYE)
     Route: 050
     Dates: start: 20240325, end: 20240325
  3. VABYSMO [Suspect]
     Active Substance: FARICIMAB\FARICIMAB-SVOA
     Dosage: (RIGHT EYE)
     Route: 050
     Dates: start: 20240422, end: 20240422

REACTIONS (1)
  - Retinal haemorrhage [Not Recovered/Not Resolved]

NARRATIVE: CASE EVENT DATE: 20240507
